FAERS Safety Report 24272104 (Version 3)
Quarter: 2025Q1

REPORT INFORMATION
  Report Type: Report from Study
  Country: CA (occurrence: CA)
  Receive Date: 20240902
  Receipt Date: 20250306
  Transmission Date: 20250409
  Serious: Yes (Other)
  Sender: TAKEDA
  Company Number: CA-TAKEDA-2024TUS068096

PATIENT
  Sex: Male
  Weight: 80.5 kg

DRUGS (8)
  1. VEDOLIZUMAB [Suspect]
     Active Substance: VEDOLIZUMAB
     Indication: Crohn^s disease
  2. VEDOLIZUMAB [Suspect]
     Active Substance: VEDOLIZUMAB
  3. VEDOLIZUMAB [Suspect]
     Active Substance: VEDOLIZUMAB
  4. VEDOLIZUMAB [Suspect]
     Active Substance: VEDOLIZUMAB
  5. IRON [Concomitant]
     Active Substance: IRON
     Indication: Supplementation therapy
  6. CODEINE [Concomitant]
     Active Substance: CODEINE
     Dosage: 45 MILLIGRAM, TID
  7. PREDNISONE [Concomitant]
     Active Substance: PREDNISONE
  8. STELARA [Concomitant]
     Active Substance: USTEKINUMAB

REACTIONS (14)
  - Crohn^s disease [Unknown]
  - Renal cell carcinoma [Unknown]
  - Nephrolithiasis [Unknown]
  - Malaise [Unknown]
  - Diarrhoea [Unknown]
  - Intermittent claudication [Unknown]
  - Transferrin increased [Unknown]
  - Blood iron decreased [Unknown]
  - Blood creatinine increased [Unknown]
  - Drug level decreased [Unknown]
  - Abdominal pain [Unknown]
  - Arthralgia [Unknown]
  - Fatigue [Unknown]
  - Sinusitis [Recovered/Resolved]
